FAERS Safety Report 18637025 (Version 4)
Quarter: 2025Q3

REPORT INFORMATION
  Report Type: Spontaneous
  Country: EU (occurrence: EU)
  Receive Date: 20201219
  Receipt Date: 20250701
  Transmission Date: 20251020
  Serious: Yes (Hospitalization)
  Sender: AUROBINDO
  Company Number: EU-MEDANA-POLPHARMA-WZFPOLFA-148133-062823-484002-043340-375022

PATIENT
  Age: 36 Year
  Sex: Female

DRUGS (21)
  1. GABAPENTIN [Suspect]
     Active Substance: GABAPENTIN
     Indication: Neuralgia
     Dosage: 300 MILLIGRAM, TWO TIMES A DAY
     Route: 065
  2. GABAPENTIN [Suspect]
     Active Substance: GABAPENTIN
     Dosage: 400 MILLIGRAM, ONCE A DAY
     Route: 065
  3. TRAMADOL [Suspect]
     Active Substance: TRAMADOL
     Indication: Pain
     Dosage: 200 MILLIGRAM, ONCE A DAY
     Route: 065
  4. TRAMADOL [Suspect]
     Active Substance: TRAMADOL
     Dosage: 400 MILLIGRAM, ONCE A DAY
     Route: 065
  5. MORPHINE [Suspect]
     Active Substance: MORPHINE
     Indication: Pain
     Dosage: 5 MILLIGRAM, EVERY FOUR HOUR
     Route: 065
  6. MORPHINE [Suspect]
     Active Substance: MORPHINE
     Indication: Breakthrough pain
  7. METHADONE [Suspect]
     Active Substance: METHADONE HYDROCHLORIDE
     Indication: Pain
     Dosage: 3 MILLIGRAM, 3 TIMES A DAY
     Route: 065
  8. METHADONE [Suspect]
     Active Substance: METHADONE HYDROCHLORIDE
     Dosage: 5 MILLIGRAM, 3 TIMES A DAY
     Route: 065
  9. NALOXONE [Suspect]
     Active Substance: NALOXONE
     Indication: Pain
     Dosage: 30 MILLIGRAM, ONCE A DAY
     Route: 065
  10. NALOXONE [Suspect]
     Active Substance: NALOXONE
     Dosage: UNK, ONCE A DAY
     Route: 065
  11. KETOPROFEN [Suspect]
     Active Substance: KETOPROFEN
     Indication: Pain
     Dosage: 200 MILLIGRAM, ONCE A DAY (THE PATIENT WAS GIVEN KETOPROFEN AT A DOSE OF 200 MG PER DAY, IN DIVIDED
     Route: 065
  12. OXYCODONE [Suspect]
     Active Substance: OXYCODONE
     Indication: Pain
     Dosage: 60 MILLIGRAM, ONCE A DAY (THE DOSE OF OXYCODONE WAS GRADUALLY INCREASED TO 60 MG PER DAY)
     Route: 065
  13. NALOXONE HYDROCHLORIDE\OXYCODONE HYDROCHLORIDE [Suspect]
     Active Substance: NALOXONE HYDROCHLORIDE\OXYCODONE HYDROCHLORIDE
     Indication: Pain
     Route: 065
  14. NALOXONE HYDROCHLORIDE\OXYCODONE HYDROCHLORIDE [Suspect]
     Active Substance: NALOXONE HYDROCHLORIDE\OXYCODONE HYDROCHLORIDE
     Dosage: 1 MILLIGRAM, ONCE A DAY
     Route: 065
  15. AMITRIPTYLINE [Concomitant]
     Active Substance: AMITRIPTYLINE
     Indication: Anxiety
     Route: 065
  16. AMITRIPTYLINE [Concomitant]
     Active Substance: AMITRIPTYLINE
     Indication: Pain
  17. LEVOTHYROXINE [Concomitant]
     Active Substance: LEVOTHYROXINE
     Indication: Goitre
     Dosage: 100 MICROGRAM, ONCE A DAY
     Route: 065
  18. VENLAFAXINE HYDROCHLORIDE [Concomitant]
     Active Substance: VENLAFAXINE HYDROCHLORIDE
     Indication: Anxiety
     Dosage: 75 MILLIGRAM, ONCE A DAY
     Route: 065
  19. VENLAFAXINE HYDROCHLORIDE [Concomitant]
     Active Substance: VENLAFAXINE HYDROCHLORIDE
     Indication: Pain
  20. FENTANYL [Concomitant]
     Active Substance: FENTANYL
     Indication: Pain
  21. FENTANYL [Concomitant]
     Active Substance: FENTANYL
     Indication: Breakthrough pain

REACTIONS (3)
  - Drug ineffective [Recovering/Resolving]
  - Constipation [Recovered/Resolved]
  - Inadequate analgesia [Recovering/Resolving]
